FAERS Safety Report 5598587-9 (Version None)
Quarter: 2007Q4

REPORT INFORMATION
  Report Type: 
  Country: None (occurrence: None)
  Receive Date: 20071226
  Receipt Date: 20071002
  Transmission Date: 20080405
  Serious: No
  Sender: FDA-Public Use
  Company Number: 2007PV033522

PATIENT
  Age: 45 Year
  Sex: Female
  Weight: 69.8539 kg

DRUGS (4)
  1. SYMLIN [Suspect]
     Indication: DIABETES MELLITUS
     Dosage: 120, 60  MCG, TID, SC
     Route: 058
     Dates: start: 20070101, end: 20070101
  2. SYMLIN [Suspect]
     Indication: DIABETES MELLITUS
     Dosage: 120, 60  MCG, TID, SC
     Route: 058
     Dates: start: 20070101
  3. APIDRA [Concomitant]
  4. LANTUS [Concomitant]

REACTIONS (2)
  - FLATULENCE [None]
  - WEIGHT INCREASED [None]
